FAERS Safety Report 4315378-7 (Version None)
Quarter: 2004Q1

REPORT INFORMATION
  Report Type: 
  Country: None (occurrence: None)
  Receive Date: 20040309
  Receipt Date: 20040220
  Transmission Date: 20041129
  Serious: Yes (Other)
  Sender: FDA-Public Use
  Company Number: JP_030901751

PATIENT
  Age: 25 Year
  Sex: Male
  Weight: 83 kg

DRUGS (2)
  1. ZYPREXA [Suspect]
     Indication: SCHIZOPHRENIA
     Dosage: 10 MG/DAY
     Route: 048
     Dates: start: 20030327, end: 20030902
  2. BROTIZOLAM [Concomitant]
     Route: 048

REACTIONS (8)
  - ABDOMINAL PAIN [None]
  - BLOOD TRIGLYCERIDES INCREASED [None]
  - DIARRHOEA [None]
  - GLYCOSYLATED HAEMOGLOBIN INCREASED [None]
  - HEADACHE [None]
  - HEPATIC FUNCTION ABNORMAL [None]
  - HYPERGLYCAEMIA [None]
  - WEIGHT INCREASED [None]
